FAERS Safety Report 21216196 (Version 2)
Quarter: 2022Q4

REPORT INFORMATION
  Report Type: Report from Study
  Country: CA (occurrence: CA)
  Receive Date: 20220816
  Receipt Date: 20221229
  Transmission Date: 20230112
  Serious: Yes (Other)
  Sender: FDA-Public Use
  Company Number: None

PATIENT
  Age: 22 Year
  Sex: Female

DRUGS (20)
  1. HYDROCHLOROTHIAZIDE [Suspect]
     Active Substance: HYDROCHLOROTHIAZIDE
     Indication: Dizziness
     Route: 065
  2. TOPIRAMATE [Suspect]
     Active Substance: TOPIRAMATE
     Indication: Product used for unknown indication
     Dosage: 1 EVERY 1 DAYS
     Route: 065
  3. ACLIDINIUM BROMIDE [Suspect]
     Active Substance: ACLIDINIUM BROMIDE
     Indication: Asthma
     Dosage: 2 EVERY 1 DAYS
     Route: 055
  4. ADVAIR HFA [Suspect]
     Active Substance: FLUTICASONE PROPIONATE\SALMETEROL XINAFOATE
     Indication: Asthma
     Dosage: 2 EVERY 1 DAYS
     Route: 065
  5. AZITHROMYCIN [Suspect]
     Active Substance: AZITHROMYCIN
     Indication: Asthma
     Dosage: 1 EVERY 1 DAYS
     Route: 065
  6. IRON [Suspect]
     Active Substance: IRON
     Indication: Product used for unknown indication
     Route: 065
  7. AMOXICILLIN TRIHYDRATE [Suspect]
     Active Substance: AMOXICILLIN
     Indication: Product used for unknown indication
     Route: 065
  8. CANNABIS SATIVA SUBSP. INDICA TOP [Suspect]
     Active Substance: CANNABIS SATIVA SUBSP. INDICA TOP
     Indication: Product used for unknown indication
     Route: 065
  9. MEPOLIZUMAB [Suspect]
     Active Substance: MEPOLIZUMAB
     Indication: Asthma
     Route: 042
  10. OLANZAPINE [Suspect]
     Active Substance: OLANZAPINE
     Indication: Product used for unknown indication
     Route: 065
  11. PREDNISONE [Suspect]
     Active Substance: PREDNISONE
     Indication: Product used for unknown indication
     Route: 065
  12. PULMICORT TURBUHALER [Suspect]
     Active Substance: BUDESONIDE
     Indication: Asthma
     Dosage: 2 EVERY 1 DAYS
     Route: 055
  13. ALBUTEROL [Suspect]
     Active Substance: ALBUTEROL
     Indication: Product used for unknown indication
     Route: 065
  14. TUMS [Suspect]
     Active Substance: CALCIUM CARBONATE
     Indication: Product used for unknown indication
     Route: 065
  15. CYMBALTA [Concomitant]
     Active Substance: DULOXETINE HYDROCHLORIDE
     Indication: Product used for unknown indication
     Dosage: 1 EVERY 1 DAYS
     Route: 065
  16. AMITRIPTYLINE [Concomitant]
     Active Substance: AMITRIPTYLINE
     Indication: Product used for unknown indication
     Route: 065
  17. FERROUS FUMARATE [Concomitant]
     Active Substance: FERROUS FUMARATE
     Indication: Product used for unknown indication
     Route: 065
  18. NASONEX [Concomitant]
     Active Substance: MOMETASONE FUROATE
     Indication: Product used for unknown indication
     Dosage: SPRAY METERED DOSE
     Route: 065
  19. PREGABALIN [Concomitant]
     Active Substance: PREGABALIN
     Indication: Product used for unknown indication
     Dosage: 1 EVERY 1 DAYS
     Route: 065
  20. VITAMIN D [Concomitant]
     Active Substance: VITAMIN D NOS
     Indication: Product used for unknown indication
     Route: 065

REACTIONS (28)
  - Asthma [Unknown]
  - Chronic sinusitis [Unknown]
  - Condition aggravated [Unknown]
  - Drug hypersensitivity [Unknown]
  - Dyspnoea [Unknown]
  - Eosinophil count increased [Unknown]
  - Full blood count abnormal [Unknown]
  - Headache [Unknown]
  - Hyperhidrosis [Unknown]
  - Loss of personal independence in daily activities [Unknown]
  - Lower respiratory tract infection [Unknown]
  - Meniere^s disease [Unknown]
  - Nasal congestion [Unknown]
  - Obstructive airways disorder [Unknown]
  - Productive cough [Unknown]
  - Rash [Unknown]
  - Rhinorrhoea [Unknown]
  - Sinus disorder [Unknown]
  - Sinus pain [Unknown]
  - Sinusitis [Unknown]
  - Sleep disorder due to a general medical condition [Unknown]
  - Sputum discoloured [Unknown]
  - Systemic lupus erythematosus [Unknown]
  - Therapeutic product effect incomplete [Unknown]
  - Tremor [Unknown]
  - Upper-airway cough syndrome [Unknown]
  - Weight increased [Unknown]
  - Wheezing [Unknown]
